FAERS Safety Report 8422498-4 (Version None)
Quarter: 2012Q2

REPORT INFORMATION
  Report Type: 
  Country: None (occurrence: None)
  Receive Date: 20120608
  Receipt Date: 20120525
  Transmission Date: 20120825
  Serious: Yes (Other)
  Sender: FDA-Public Use
  Company Number: GB-WATSON-2012-08172

PATIENT
  Age: 68 Year
  Sex: Female

DRUGS (1)
  1. ALBUTEROL [Suspect]
     Indication: CHRONIC OBSTRUCTIVE PULMONARY DISEASE
     Dosage: 100 UG, UNKNOWN, EXPDT=??-NOV-2012
     Route: 065
     Dates: start: 20120419, end: 20120420

REACTIONS (6)
  - DYSPNOEA [None]
  - WHEEZING [None]
  - TREMOR [None]
  - CHEST DISCOMFORT [None]
  - HEART RATE INCREASED [None]
  - PARAESTHESIA ORAL [None]
